FAERS Safety Report 15510248 (Version 1)
Quarter: 2018Q4

REPORT INFORMATION
  Report Type: Spontaneous
  Country: US (occurrence: US)
  Receive Date: 20181017
  Receipt Date: 20181017
  Transmission Date: 20190205
  Serious: Yes (Hospitalization, Other)
  Sender: FDA-Public Use
  Company Number: None

PATIENT
  Age: 35 Year
  Sex: Male
  Weight: 77.4 kg

DRUGS (1)
  1. TAMIFLU [Suspect]
     Active Substance: OSELTAMIVIR PHOSPHATE
     Indication: INFLUENZA
     Dosage: ?          QUANTITY:10 CAPSULE(S);?
     Route: 048
     Dates: start: 20180224, end: 20180228

REACTIONS (7)
  - Screaming [None]
  - Intentional self-injury [None]
  - Physical assault [None]
  - Hallucination [None]
  - Psychotic disorder [None]
  - Aggression [None]
  - Insomnia [None]

NARRATIVE: CASE EVENT DATE: 20180301
